FAERS Safety Report 24446605 (Version 1)
Quarter: 2024Q4

REPORT INFORMATION
  Report Type: Spontaneous
  Country: RO (occurrence: RO)
  Receive Date: 20241016
  Receipt Date: 20241016
  Transmission Date: 20250115
  Serious: Yes (Other)
  Sender: ELI LILLY AND COMPANY
  Company Number: RO-ELI_LILLY_AND_COMPANY-RO202410006864

PATIENT
  Age: 52 Year
  Sex: Female

DRUGS (3)
  1. ABEMACICLIB [Suspect]
     Active Substance: ABEMACICLIB
     Indication: Breast cancer
     Dosage: UNK UNK, UNKNOWN
     Route: 065
     Dates: start: 20240716
  2. LETROZOLE [Concomitant]
     Active Substance: LETROZOLE
     Indication: Product used for unknown indication
     Dosage: UNK UNK, UNKNOWN
  3. DOCETAXEL [Concomitant]
     Active Substance: DOCETAXEL
     Indication: Product used for unknown indication
     Dosage: UNK UNK, UNKNOWN

REACTIONS (3)
  - Nephropathy toxic [Unknown]
  - Asthenia [Unknown]
  - Diarrhoea [Unknown]
